FAERS Safety Report 7420813-1 (Version None)
Quarter: 2011Q2

REPORT INFORMATION
  Report Type: 
  Country: None (occurrence: None)
  Receive Date: 20110418
  Receipt Date: 20110413
  Transmission Date: 20111010
  Serious: Yes (Other)
  Sender: FDA-Public Use
  Company Number: A0922844A

PATIENT
  Age: 60 Year
  Sex: Female

DRUGS (1)
  1. EQUATE NTS 21MG, CLEAR [Suspect]
     Indication: SMOKING CESSATION THERAPY
     Route: 062
     Dates: start: 20110411, end: 20110411

REACTIONS (4)
  - MYOCARDIAL INFARCTION [None]
  - HYPERHIDROSIS [None]
  - FEELING HOT [None]
  - ASTHENIA [None]
